FAERS Safety Report 5972983-X (Version None)
Quarter: 2008Q4

REPORT INFORMATION
  Report Type: 
  Country: None (occurrence: None)
  Receive Date: 20081201
  Receipt Date: 20081124
  Transmission Date: 20090506
  Serious: Yes (Other)
  Sender: FDA-Public Use
  Company Number: PHHY2008GB29915

PATIENT
  Age: 61 Year
  Sex: Female

DRUGS (8)
  1. ALISKIREN [Suspect]
     Indication: HYPERTENSION
     Dosage: UNK
     Dates: start: 20080527
  2. DESLORATIDINE [Concomitant]
  3. BENDROFLUAZIDE [Concomitant]
     Dosage: UNK
  4. CITALOPRAM HYDROBROMIDE [Concomitant]
     Dosage: 40 MG
  5. HYDRALAZINE HCL [Concomitant]
  6. MOXONIDINE [Concomitant]
     Dosage: 400 UG
  7. ALBUTEROL SULFATE [Concomitant]
  8. SERETIDE [Concomitant]

REACTIONS (1)
  - MYODESOPSIA [None]
